FAERS Safety Report 18568892 (Version 2)
Quarter: 2021Q1

REPORT INFORMATION
  Report Type: Spontaneous
  Country: ES (occurrence: ES)
  Receive Date: 20201202
  Receipt Date: 20210105
  Transmission Date: 20210419
  Serious: Yes (Hospitalization, Other)
  Sender: FDA-Public Use
  Company Number: ES-SHILPA MEDICARE LIMITED-SML-ES-2020-00709

PATIENT
  Age: 79 Year
  Sex: Male

DRUGS (1)
  1. CAPECITABINA, UNKNOWN [Suspect]
     Active Substance: CAPECITABINE
     Indication: CHOLANGIOCARCINOMA
     Route: 048

REACTIONS (3)
  - Metastases to lung [Unknown]
  - Off label use [Unknown]
  - Intentional product use issue [Unknown]
